FAERS Safety Report 5441337-7 (Version None)
Quarter: 2007Q3

REPORT INFORMATION
  Report Type: 
  Country: None (occurrence: None)
  Receive Date: 20070903
  Receipt Date: 20070827
  Transmission Date: 20080115
  Serious: Yes (Other)
  Sender: FDA-Public Use
  Company Number: PHBS2007GB14221

PATIENT
  Age: 53 Year
  Sex: Female

DRUGS (2)
  1. ZOLEDRONIC ACID [Suspect]
     Indication: METASTASES TO BONE
  2. CLODRONATE DISODIUM [Concomitant]

REACTIONS (7)
  - BONE DISORDER [None]
  - IMPAIRED HEALING [None]
  - OSTEOLYSIS [None]
  - OSTEOSCLEROSIS [None]
  - PAIN [None]
  - TOOTH EXTRACTION [None]
  - X-RAY ABNORMAL [None]
